FAERS Safety Report 21436368 (Version 4)
Quarter: 2022Q4

REPORT INFORMATION
  Report Type: Report from Study
  Country: IT (occurrence: None)
  Receive Date: 20221010
  Receipt Date: 20221019
  Transmission Date: 20230112
  Serious: Yes (Hospitalization)
  Sender: FDA-Public Use
  Company Number: IT-ROCHE-3072223

PATIENT
  Age: 61 Year
  Sex: Male
  Weight: 66 kg

DRUGS (2)
  1. ATEZOLIZUMAB [Suspect]
     Active Substance: ATEZOLIZUMAB
     Indication: Hepatocellular carcinoma
     Dosage: ON 28/JAN/2022, DOSE OF LAST ATEZOLIZUMAB ADMINISTERED PRIOR TO AE ONSET WAS 1200 MG
     Route: 041
     Dates: start: 20210517
  2. BEVACIZUMAB [Suspect]
     Active Substance: BEVACIZUMAB
     Indication: Hepatocellular carcinoma
     Dosage: DOSE OF LAST BEVACIZUMAB ADMINISTERED PRIOR TO SAE ONSET 990 MG?DATE OF MOST RECENT DOSE OF BEVACIZU
     Route: 042
     Dates: start: 20210517

REACTIONS (2)
  - Pelvic venous thrombosis [Not Recovered/Not Resolved]
  - Anaemia [Not Recovered/Not Resolved]

NARRATIVE: CASE EVENT DATE: 20220128
